FAERS Safety Report 5295740-9 (Version None)
Quarter: 2007Q2

REPORT INFORMATION
  Report Type: 
  Country: None (occurrence: None)
  Receive Date: 20070406
  Receipt Date: 20070330
  Transmission Date: 20071010
  Serious: Yes (Death)
  Sender: FDA-Public Use
  Company Number: 2007VX001019

PATIENT
  Age: 68 Year
  Sex: Male
  Weight: 109 kg

DRUGS (10)
  1. TASMAR [Suspect]
     Indication: PARKINSON'S DISEASE
     Dosage: SEE IMAGE
     Route: 048
     Dates: start: 20060207, end: 20060912
  2. TASMAR [Suspect]
     Indication: PARKINSON'S DISEASE
     Dosage: SEE IMAGE
     Route: 048
     Dates: start: 20060913, end: 20070219
  3. MADOPAR (MADOPAR) [Suspect]
     Indication: PARKINSON'S DISEASE
     Dosage: 1000 MG; QD;
     Dates: end: 20070219
  4. BUMETANIDE [Concomitant]
  5. ATORVASTATIN CALCIUM [Concomitant]
  6. PARACETAMOL [Concomitant]
  7. ENTACAPONE [Concomitant]
  8. PRAMIPEXOLE DIHYDROCHLORIDE [Concomitant]
  9. RASAGILINE MESILATE [Concomitant]
  10. OMEPRAZOLE [Concomitant]

REACTIONS (2)
  - CARDIAC FAILURE CONGESTIVE [None]
  - CHRONIC OBSTRUCTIVE PULMONARY DISEASE [None]
